FAERS Safety Report 18719157 (Version 2)
Quarter: 2021Q1

REPORT INFORMATION
  Report Type: Spontaneous
  Country: US (occurrence: US)
  Receive Date: 20210108
  Receipt Date: 20210302
  Transmission Date: 20210419
  Serious: Yes (Hospitalization, Other)
  Sender: FDA-Public Use
  Company Number: US-ELI_LILLY_AND_COMPANY-US202012014063

PATIENT
  Age: 74 Year
  Sex: Male
  Weight: 84.4 kg

DRUGS (14)
  1. OCUVITE [ASCORBIC ACID;BETACAROTENE;CUPRIC OX [Concomitant]
     Route: 048
  2. PRAVACHOL [Concomitant]
     Active Substance: PRAVASTATIN SODIUM
  3. CAL MAG ZINC+D [Concomitant]
  4. THERAGRAN [ASCORBIC ACID;CALCIUM PANTOTHENATE [Concomitant]
  5. ZYLOPRIM [Concomitant]
     Active Substance: ALLOPURINOL
  6. BENADRYL [Concomitant]
     Active Substance: DIPHENHYDRAMINE HYDROCHLORIDE
  7. ZOFRAN [Concomitant]
     Active Substance: ONDANSETRON HYDROCHLORIDE
  8. BAMLANIVIMAB 700MG [Suspect]
     Active Substance: BAMLANIVIMAB
     Indication: COVID-19
     Dosage: 700 MG, SINGLE
     Route: 041
     Dates: start: 20201220, end: 20201220
  9. SAPHRIS [Concomitant]
     Active Substance: ASENAPINE MALEATE
     Route: 060
  10. DECADRON [Concomitant]
     Active Substance: DEXAMETHASONE
  11. DELTASONE [PREDNISOLONE] [Concomitant]
     Active Substance: PREDNISOLONE
  12. PROTONIX [OMEPRAZOLE] [Concomitant]
     Active Substance: OMEPRAZOLE
  13. ASPIRIN [ACETYLSALICYLIC ACID] [Concomitant]
     Active Substance: ASPIRIN
  14. CARAFATE [Concomitant]
     Active Substance: SUCRALFATE

REACTIONS (3)
  - COVID-19 [Unknown]
  - Mental status changes [Unknown]
  - Lung infiltration [Unknown]

NARRATIVE: CASE EVENT DATE: 20201222
